FAERS Safety Report 11433503 (Version 1)
Quarter: 2015Q3

REPORT INFORMATION
  Report Type: Spontaneous
  Country: US (occurrence: US)
  Receive Date: 20150831
  Receipt Date: 20150831
  Transmission Date: 20151125
  Serious: Yes (Hospitalization)
  Sender: FDA-Public Use
  Company Number: US-ROCHE-1627764

PATIENT
  Sex: Female
  Weight: 77.18 kg

DRUGS (1)
  1. ESBRIET [Suspect]
     Active Substance: PIRFENIDONE
     Indication: IDIOPATHIC PULMONARY FIBROSIS
     Dosage: 3 CAPS PO TID 801 MG TID/ TOTAL OF 2403 MG DAILY
     Route: 048
     Dates: start: 20150807

REACTIONS (4)
  - Fungal infection [Unknown]
  - Stomatitis [Unknown]
  - Dehydration [Unknown]
  - Lung infection [Unknown]
